FAERS Safety Report 24588113 (Version 1)
Quarter: 2024Q4

REPORT INFORMATION
  Report Type: Spontaneous
  Country: US (occurrence: None)
  Receive Date: 20241106
  Receipt Date: 20241106
  Transmission Date: 20250115
  Serious: Yes (Death)
  Sender: Public
  Company Number: None

PATIENT
  Age: 80 Year
  Sex: Female

DRUGS (12)
  1. ENVARSUS XR [Suspect]
     Active Substance: TACROLIMUS
     Indication: Renal transplant
     Dosage: FREQUENCY : DAILY;?
     Route: 048
  2. MYCOPHENOLIC ACID [Suspect]
     Active Substance: MYCOPHENOLIC ACID
     Indication: Renal transplant
     Dosage: FREQUENCY : DAILY;?
     Route: 048
  3. ASPIRIN 81MG [Concomitant]
  4. ATORVASTATIN 40MG [Concomitant]
  5. CALCIUM CARB 500MG [Concomitant]
  6. CARVEDILOL 12.5MG [Concomitant]
  7. DONEPEZIL 10MG [Concomitant]
  8. FERROUS SULFATE 325 MG [Concomitant]
  9. FOLIC ACID [Concomitant]
     Active Substance: FOLIC ACID
  10. FUROSEMIDE 40MG [Concomitant]
  11. LEVOTHYROXINE 175MCG [Concomitant]
  12. LISINOPRIL 20MG [Concomitant]

REACTIONS (1)
  - Death [None]

NARRATIVE: CASE EVENT DATE: 20241028
